FAERS Safety Report 4660817-5 (Version None)
Quarter: 2005Q2

REPORT INFORMATION
  Report Type: 
  Country: None (occurrence: None)
  Receive Date: 20050427
  Receipt Date: 20040406
  Transmission Date: 20051028
  Serious: Yes (Other)
  Sender: FDA-Public Use
  Company Number: US-JNJFOC-20040402373

PATIENT
  Sex: 0

DRUGS (2)
  1. ULTRAM [Suspect]
  2. ANTI-DEPRESSANTS (ANTIDEPRESSANTS) [Concomitant]

REACTIONS (1)
  - CONVULSION [None]
